FAERS Safety Report 4875327-X (Version None)
Quarter: 2006Q1

REPORT INFORMATION
  Report Type: 
  Country: None (occurrence: None)
  Receive Date: 20060109
  Receipt Date: 20051228
  Transmission Date: 20060701
  Serious: Yes (Other)
  Sender: FDA-Public Use
  Company Number: US-MERCK-0512USA04032

PATIENT
  Sex: Female

DRUGS (2)
  1. VIOXX [Suspect]
     Route: 048
     Dates: start: 20000101, end: 20020901
  2. VIOXX [Suspect]
     Route: 048
     Dates: start: 20030815, end: 20040930

REACTIONS (1)
  - MYOCARDIAL INFARCTION [None]
